FAERS Safety Report 14367758 (Version 1)
Quarter: 2018Q1

REPORT INFORMATION
  Report Type: Spontaneous
  Country: US (occurrence: US)
  Receive Date: 20180109
  Receipt Date: 20180109
  Transmission Date: 20180509
  Serious: No
  Sender: FDA-Public Use
  Company Number: US-PERRIGO-17US024705

PATIENT
  Age: 45 Year
  Sex: Female

DRUGS (4)
  1. MIGRAINE FORMULA [Suspect]
     Active Substance: ACETAMINOPHEN\ASPIRIN\CAFFEINE
     Indication: MIGRAINE
     Dosage: 2 TABLETS QD PRN
     Route: 048
     Dates: start: 2016, end: 201704
  2. DIURETICS [Concomitant]
     Active Substance: UNSPECIFIED INGREDIENT
     Indication: PLEURAL EFFUSION
     Dosage: UNK
     Route: 065
  3. MIGRAINE FORMULA [Suspect]
     Active Substance: ACETAMINOPHEN\ASPIRIN\CAFFEINE
     Dosage: 2 TABLETS QHS
     Route: 048
     Dates: start: 20170620, end: 20170621
  4. MIGRAINE FORMULA [Suspect]
     Active Substance: ACETAMINOPHEN\ASPIRIN\CAFFEINE
     Dosage: 2 TABLETS, SINGLE
     Route: 048
     Dates: start: 20170622, end: 20170622

REACTIONS (3)
  - Tearfulness [Not Recovered/Not Resolved]
  - Incorrect dose administered [Recovered/Resolved]
  - Dizziness [Not Recovered/Not Resolved]

NARRATIVE: CASE EVENT DATE: 20170622
